FAERS Safety Report 12998167 (Version 3)
Quarter: 2017Q1

REPORT INFORMATION
  Report Type: Spontaneous
  Country: US (occurrence: US)
  Receive Date: 20161205
  Receipt Date: 20170106
  Transmission Date: 20170428
  Serious: No
  Sender: FDA-Public Use
  Company Number: US-PFIZER INC-2016562481

PATIENT
  Age: 45 Year
  Sex: Male

DRUGS (4)
  1. MARCAINE [Suspect]
     Active Substance: BUPIVACAINE HYDROCHLORIDE
     Indication: SPINAL ANAESTHESIA
     Dosage: UNK
     Route: 037
     Dates: start: 20161122, end: 20161122
  2. MARCAINE [Suspect]
     Active Substance: BUPIVACAINE HYDROCHLORIDE
     Indication: SPINAL ANAESTHESIA
     Dosage: UNK
     Route: 037
     Dates: start: 20161122, end: 20161122
  3. DEXTROSE. [Suspect]
     Active Substance: DEXTROSE
     Indication: SPINAL ANAESTHESIA
  4. DEXTROSE. [Suspect]
     Active Substance: DEXTROSE
     Indication: SPINAL ANAESTHESIA
     Dosage: 8.25 %, UNK
     Route: 037
     Dates: start: 20161122, end: 20161122

REACTIONS (1)
  - Drug ineffective [Recovered/Resolved]

NARRATIVE: CASE EVENT DATE: 20161122
